FAERS Safety Report 19693648 (Version 1)
Quarter: 2021Q3

REPORT INFORMATION
  Report Type: Spontaneous
  Country: CA (occurrence: CA)
  Receive Date: 20210813
  Receipt Date: 20210813
  Transmission Date: 20211014
  Serious: Yes (Other)
  Sender: FDA-Public Use
  Company Number: CA-SAMSUNG BIOEPIS-SB-2021-18791

PATIENT
  Age: 36 Year
  Sex: Female

DRUGS (2)
  1. INFLIXIMAB [Suspect]
     Active Substance: INFLIXIMAB
     Indication: CROHN^S DISEASE
     Route: 042
  2. AZATHIOPRINE. [Concomitant]
     Active Substance: AZATHIOPRINE
     Indication: PRODUCT USED FOR UNKNOWN INDICATION
     Route: 065

REACTIONS (12)
  - Off label use [Unknown]
  - Anal fissure [Unknown]
  - Weight increased [Unknown]
  - Weight decreased [Unknown]
  - Blood pressure increased [Unknown]
  - Vitamin D deficiency [Unknown]
  - Maternal exposure during pregnancy [Unknown]
  - Faecal calprotectin increased [Unknown]
  - Drug specific antibody present [Unknown]
  - Intentional product use issue [Unknown]
  - Condition aggravated [Unknown]
  - Drug level above therapeutic [Unknown]
